FAERS Safety Report 9717623 (Version 3)
Quarter: 2014Q1

REPORT INFORMATION
  Report Type: Spontaneous
  Country: AU (occurrence: AU)
  Receive Date: 20131127
  Receipt Date: 20140103
  Transmission Date: 20141002
  Serious: Yes (Hospitalization)
  Sender: FDA-Public Use
  Company Number: AU-PFIZER INC-2013336501

PATIENT
  Age: 19 Year
  Sex: Male
  Weight: 59 kg

DRUGS (5)
  1. GENOTROPIN [Suspect]
     Indication: GROWTH HORMONE DEFICIENCY
     Dosage: 1.3 MG, 1X/DAY
     Route: 058
     Dates: start: 20110801, end: 20131009
  2. HYDROCORTISONE [Concomitant]
     Indication: HYPOPITUITARISM
     Dosage: 8MG, 4MG, 4MG
     Route: 048
     Dates: start: 20100517
  3. DDAVP [Concomitant]
     Indication: DIABETES INSIPIDUS
     Dosage: 100 MG, 2X/DAY
     Route: 048
     Dates: start: 20100520
  4. THYROXINE [Concomitant]
     Indication: HYPOPITUITARISM
     Dosage: 100 UG, 1X/DAY
     Route: 048
     Dates: start: 20100520
  5. TESTOSTERONE [Concomitant]
     Indication: HYPOPITUITARISM
     Dosage: 100 MG, MONTHLY
     Route: 030
     Dates: start: 20111107

REACTIONS (2)
  - Craniopharyngioma [Recovered/Resolved with Sequelae]
  - Neoplasm recurrence [Recovered/Resolved with Sequelae]
